FAERS Safety Report 23751596 (Version 2)
Quarter: 2024Q2

REPORT INFORMATION
  Report Type: Spontaneous
  Country: BR (occurrence: BR)
  Receive Date: 20240417
  Receipt Date: 20240419
  Transmission Date: 20240715
  Serious: Yes (Other)
  Sender: FDA-Public Use
  Company Number: BR-MYLANLABS-2024M1033049

PATIENT
  Weight: 65 kg

DRUGS (12)
  1. ALPRAZOLAM [Suspect]
     Active Substance: ALPRAZOLAM
     Indication: Anxiety
     Dosage: 0.5 MILLIGRAM, TID
     Route: 065
     Dates: end: 202403
  2. ALPRAZOLAM [Suspect]
     Active Substance: ALPRAZOLAM
     Indication: Anxiety
     Dosage: 1 MILLIGRAM, TID
     Route: 065
     Dates: start: 202403
  3. BROMOPRIDE [Suspect]
     Active Substance: BROMOPRIDE
     Indication: Illness
     Dosage: UNK
     Route: 065
     Dates: start: 2023
  4. BROMOPRIDE [Suspect]
     Active Substance: BROMOPRIDE
     Indication: Abdominal pain upper
  5. BROMOPRIDE [Suspect]
     Active Substance: BROMOPRIDE
     Indication: Gastrointestinal inflammation
  6. METOCLOPRAMIDE HYDROCHLORIDE [Suspect]
     Active Substance: METOCLOPRAMIDE HYDROCHLORIDE
     Indication: Illness
     Dosage: UNK
     Route: 065
     Dates: start: 2023
  7. METOCLOPRAMIDE HYDROCHLORIDE [Suspect]
     Active Substance: METOCLOPRAMIDE HYDROCHLORIDE
     Indication: Abdominal pain upper
  8. METOCLOPRAMIDE HYDROCHLORIDE [Suspect]
     Active Substance: METOCLOPRAMIDE HYDROCHLORIDE
     Indication: Gastrointestinal inflammation
  9. VALSARTAN [Concomitant]
     Active Substance: VALSARTAN
     Indication: Hypertension
     Dosage: UNK
     Route: 065
  10. VINPOCETINE [Concomitant]
     Active Substance: VINPOCETINE
     Indication: Atherosclerosis prophylaxis
     Dosage: UNK
     Route: 065
  11. ROSUVASTATIN [Concomitant]
     Active Substance: ROSUVASTATIN
     Indication: Hypertension
     Dosage: UNK
     Route: 065
     Dates: start: 2014
  12. QUETIAPINE [Concomitant]
     Active Substance: QUETIAPINE
     Indication: Sleep disorder
     Dosage: UNK
     Route: 065
     Dates: start: 2019

REACTIONS (19)
  - Depression [Unknown]
  - Breast mass [Unknown]
  - Product use issue [Unknown]
  - Product storage error [Unknown]
  - Nail avulsion [Recovered/Resolved]
  - Back pain [Unknown]
  - Fall [Unknown]
  - Contusion [Recovered/Resolved]
  - Nervous system disorder [Unknown]
  - Onychoclasis [Not Recovered/Not Resolved]
  - Memory impairment [Unknown]
  - Product availability issue [Not Recovered/Not Resolved]
  - Abdominal pain upper [Recovered/Resolved]
  - Gastrointestinal inflammation [Recovered/Resolved]
  - Anxiety [Recovered/Resolved]
  - Blood pressure increased [Recovered/Resolved]
  - Illness [Recovered/Resolved]
  - Hypersensitivity [Unknown]
  - Sleep disorder [Unknown]

NARRATIVE: CASE EVENT DATE: 20220101
